FAERS Safety Report 22369133 (Version 3)
Quarter: 2023Q2

REPORT INFORMATION
  Report Type: Report from Study
  Country: US (occurrence: US)
  Receive Date: 20230525
  Receipt Date: 20230601
  Transmission Date: 20230721
  Serious: Yes (Hospitalization)
  Sender: FDA-Public Use
  Company Number: US-JNJFOC-20230549861

PATIENT
  Age: 3 Decade
  Sex: Male
  Weight: 115.77 kg

DRUGS (2)
  1. INFLIXIMAB [Suspect]
     Active Substance: INFLIXIMAB
     Indication: Inflammatory bowel disease
     Route: 041
     Dates: start: 20070324, end: 20071015
  2. STELARA [Suspect]
     Active Substance: USTEKINUMAB
     Indication: Product used for unknown indication
     Dosage: DATE OF LAST ADMINISTRATION PRIOR TO THE EVENT ON 26-APR2023
     Route: 058
     Dates: start: 20200731

REACTIONS (1)
  - Gastroenteritis sapovirus [Recovered/Resolved]

NARRATIVE: CASE EVENT DATE: 20230503
